FAERS Safety Report 16251474 (Version 1)
Quarter: 2019Q2

REPORT INFORMATION
  Report Type: Spontaneous
  Country: IT (occurrence: IT)
  Receive Date: 20190429
  Receipt Date: 20190429
  Transmission Date: 20190711
  Serious: Yes (Other)
  Sender: FDA-Public Use
  Company Number: IT-PFIZER INC-2019180516

PATIENT
  Sex: Male

DRUGS (1)
  1. LEVETIRACETAM. [Suspect]
     Active Substance: LEVETIRACETAM
     Dosage: 1250 MG DAILY
     Dates: start: 201401, end: 20180901

REACTIONS (2)
  - Cataract [Recovered/Resolved]
  - Hydrocele [Recovered/Resolved]

NARRATIVE: CASE EVENT DATE: 2015
